FAERS Safety Report 12483104 (Version 2)
Quarter: 2016Q3

REPORT INFORMATION
  Report Type: Report from Study
  Country: DE (occurrence: DE)
  Receive Date: 20160620
  Receipt Date: 20160915
  Transmission Date: 20161109
  Serious: Yes (Hospitalization)
  Sender: FDA-Public Use
  Company Number: DE-BIOGEN-2016BI00253775

PATIENT
  Age: 49 Year
  Sex: Female

DRUGS (1)
  1. PLEGRIDY [Suspect]
     Active Substance: PEGINTERFERON BETA-1A
     Indication: MULTIPLE SCLEROSIS
     Route: 058
     Dates: start: 20151119

REACTIONS (2)
  - Multiple sclerosis relapse [Recovered/Resolved]
  - Blindness [Recovered/Resolved]

NARRATIVE: CASE EVENT DATE: 201605
